FAERS Safety Report 9964982 (Version 1)
Quarter: 2014Q1

REPORT INFORMATION
  Report Type: Report from Study
  Country: US (occurrence: US)
  Receive Date: 20140305
  Receipt Date: 20140305
  Transmission Date: 20141002
  Serious: No
  Sender: FDA-Public Use
  Company Number: US-ABBVIE-13P-163-1128537-00

PATIENT
  Age: 34 Year
  Sex: 0

DRUGS (1)
  1. HUMIRA [Suspect]
     Indication: RHEUMATOID ARTHRITIS

REACTIONS (5)
  - Incorrect dose administered [Unknown]
  - Injection site reaction [Unknown]
  - Injection site papule [Unknown]
  - Injection site erythema [Unknown]
  - Injection site pain [Unknown]
